FAERS Safety Report 25264163 (Version 4)
Quarter: 2025Q4

REPORT INFORMATION
  Report Type: Spontaneous
  Country: US (occurrence: US)
  Receive Date: 20250502
  Receipt Date: 20251004
  Transmission Date: 20260117
  Serious: No
  Sender: SUNOVION
  Company Number: US-SMPA-2025SPA005200AA

PATIENT
  Age: 72 Year
  Sex: Male

DRUGS (15)
  1. ORGOVYX [Suspect]
     Active Substance: RELUGOLIX
     Indication: Prostate cancer
     Dosage: 120 MG, QD
     Route: 048
     Dates: start: 202502
  2. CANNABIDIOL [Concomitant]
     Active Substance: CANNABIDIOL
     Dosage: UNK (POWDER)
  3. CELEBREX [Concomitant]
     Active Substance: CELECOXIB
     Dosage: 200 MG
  4. Coqmax omega [Concomitant]
     Dosage: 50 MG
  5. VITAMIN D3 [Concomitant]
     Active Substance: CHOLECALCIFEROL
     Dosage: 50 MG
  6. IVERMECTIN [Concomitant]
     Active Substance: IVERMECTIN
     Dosage: 3 MG
  7. Magnesium bisglycinate [Concomitant]
     Dosage: 100 MG
  8. MEBENDAZOLE [Concomitant]
     Active Substance: MEBENDAZOLE
     Dosage: UNK (POWDER)
  9. METFORMIN HYDROCHLORIDE [Concomitant]
     Active Substance: METFORMIN HYDROCHLORIDE
     Dosage: 850 MG
  10. Naltrex [Concomitant]
     Dosage: 4.5 MG
  11. NP THYROID [Concomitant]
     Active Substance: LEVOTHYROXINE\LIOTHYRONINE
     Dosage: 30 MG
  12. PROPRANOLOL HYDROCHLORIDE [Concomitant]
     Active Substance: PROPRANOLOL HYDROCHLORIDE
     Dosage: 20 MG
  13. VALPROIC ACID [Concomitant]
     Active Substance: VALPROIC ACID
     Dosage: 250 MG
  14. XTANDI [Concomitant]
     Active Substance: ENZALUTAMIDE
     Dosage: 80 MG
  15. ZOLEDRONIC ACID [Concomitant]
     Active Substance: ZOLEDRONIC ACID
     Dosage: 4 MG/100 ML

REACTIONS (6)
  - Muscular weakness [Unknown]
  - Hot flush [Unknown]
  - Weight increased [Unknown]
  - Insomnia [Unknown]
  - Fatigue [Unknown]
  - Incorrect dose administered [Unknown]
